FAERS Safety Report 23961596 (Version 1)
Quarter: 2024Q2

REPORT INFORMATION
  Report Type: Report from Study
  Country: CN (occurrence: CN)
  Receive Date: 20240611
  Receipt Date: 20240611
  Transmission Date: 20240716
  Serious: Yes (Other)
  Sender: FDA-Public Use
  Company Number: CN-TAKEDA-2023TUS071642

PATIENT
  Age: 66 Year
  Sex: Female
  Weight: 49.7 kg

DRUGS (8)
  1. BRENTUXIMAB VEDOTIN [Suspect]
     Active Substance: BRENTUXIMAB VEDOTIN
     Indication: Angioimmunoblastic T-cell lymphoma
     Dosage: 100 MILLIGRAM, Q3WEEKS
     Route: 041
     Dates: start: 20230625
  2. ETOPOSIDE [Suspect]
     Active Substance: ETOPOSIDE
     Indication: Angioimmunoblastic T-cell lymphoma
     Dosage: 50 MG
     Route: 048
     Dates: end: 20230625
  3. FELODIPINE [Concomitant]
     Active Substance: FELODIPINE
     Indication: Hypertension
     Dosage: 5 MG
     Route: 048
  4. NIFEDIPINE [Concomitant]
     Active Substance: NIFEDIPINE
     Indication: Hypertension
  5. ESTAZOLAM [Concomitant]
     Active Substance: ESTAZOLAM
     Dosage: 2 MG
     Route: 048
     Dates: start: 20230712, end: 20230712
  6. LIDOCAINE HYDROCHLORIDE [Concomitant]
     Active Substance: LIDOCAINE HYDROCHLORIDE
     Dosage: 0.1 G
     Route: 030
     Dates: start: 20230725, end: 20230725
  7. MAGNESIUM SULFATE [Concomitant]
     Active Substance: MAGNESIUM SULFATE\MAGNESIUM SULFATE HEPTAHYDRATE
     Dosage: 2 ML
     Route: 061
     Dates: start: 20230729, end: 20230729
  8. MUPIROCIN [Concomitant]
     Active Substance: MUPIROCIN
     Dosage: 10 G
     Route: 061
     Dates: start: 20230729, end: 20230729

REACTIONS (4)
  - Myelosuppression [Unknown]
  - Hypokalaemia [Unknown]
  - Sepsis [Unknown]
  - Off label use [Unknown]

NARRATIVE: CASE EVENT DATE: 20230625
